FAERS Safety Report 10529050 (Version 1)
Quarter: 2014Q4

REPORT INFORMATION
  Report Type: Spontaneous
  Country: US (occurrence: US)
  Receive Date: 20141020
  Receipt Date: 20141020
  Transmission Date: 20150528
  Serious: Yes (Death, Hospitalization, Other)
  Sender: FDA-Public Use
  Company Number: US-B.I. PHARMACEUTICALS,INC./RIDGEFIELD-2014-BI-49871BP

PATIENT
  Age: 76 Year
  Sex: Female

DRUGS (5)
  1. PRADAXA [Suspect]
     Active Substance: DABIGATRAN ETEXILATE MESYLATE
     Indication: ATRIAL FIBRILLATION
  2. ASPIRIN. [Concomitant]
     Active Substance: ASPIRIN
     Indication: PRODUCT USED FOR UNKNOWN INDICATION
     Route: 065
  3. TYLENOL [Concomitant]
     Active Substance: ACETAMINOPHEN
     Indication: PRODUCT USED FOR UNKNOWN INDICATION
     Route: 065
  4. AMIODARONE [Concomitant]
     Active Substance: AMIODARONE
     Indication: PRODUCT USED FOR UNKNOWN INDICATION
     Route: 065
  5. PRADAXA [Suspect]
     Active Substance: DABIGATRAN ETEXILATE MESYLATE
     Indication: CEREBROVASCULAR ACCIDENT PROPHYLAXIS
     Dosage: 300 MG
     Route: 065
     Dates: start: 20110402

REACTIONS (13)
  - Atrial fibrillation [Fatal]
  - Intestinal ischaemia [Unknown]
  - Disseminated intravascular coagulation [Unknown]
  - Normochromic normocytic anaemia [Unknown]
  - Pericardial haemorrhage [Unknown]
  - Septic shock [Fatal]
  - Acute kidney injury [Unknown]
  - Metabolic acidosis [Unknown]
  - Electrolyte imbalance [Unknown]
  - Hypovolaemic shock [Unknown]
  - Colitis ischaemic [Fatal]
  - Leukocytosis [Unknown]
  - Haematochezia [Unknown]

NARRATIVE: CASE EVENT DATE: 20110420
